FAERS Safety Report 6781598-5 (Version None)
Quarter: 2010Q2

REPORT INFORMATION
  Report Type: 
  Country: None (occurrence: None)
  Receive Date: 20100617
  Receipt Date: 20100617
  Transmission Date: 20101027
  Serious: Yes (Other)
  Sender: FDA-Public Use
  Company Number: None

PATIENT
  Sex: Female
  Weight: 71.2147 kg

DRUGS (2)
  1. ADVAIR DISKUS 250/50 [Suspect]
     Dosage: 250/50 2X'S DAY
  2. ADVAIR DISKUS 100/50 [Suspect]
     Dosage: 100/50

REACTIONS (2)
  - APHONIA [None]
  - CONDITION AGGRAVATED [None]
